FAERS Safety Report 7528102-1 (Version None)
Quarter: 2011Q2

REPORT INFORMATION
  Report Type: 
  Country: None (occurrence: None)
  Receive Date: 20110607
  Receipt Date: 20110526
  Transmission Date: 20111010
  Serious: Yes (Hospitalization, Other)
  Sender: FDA-Public Use
  Company Number: US-ELI_LILLY_AND_COMPANY-US201105008847

PATIENT
  Age: 49 Year
  Sex: Male

DRUGS (1)
  1. EFFIENT [Suspect]
     Indication: CEREBROVASCULAR ACCIDENT
     Dosage: 10 MG, UNKNOWN
     Route: 065
     Dates: start: 20090501, end: 20110501

REACTIONS (3)
  - DISEASE PROGRESSION [None]
  - OFF LABEL USE [None]
  - STENT PLACEMENT [None]
